FAERS Safety Report 6218031-8 (Version None)
Quarter: 2009Q2

REPORT INFORMATION
  Report Type: 
  Country: None (occurrence: None)
  Receive Date: 20090604
  Receipt Date: 20090604
  Transmission Date: 20091009
  Serious: Yes (Other)
  Sender: FDA-Public Use
  Company Number: None

PATIENT
  Age: 50 Year
  Sex: Female
  Weight: 72.5755 kg

DRUGS (2)
  1. CRESTOR [Suspect]
     Indication: BLOOD CHOLESTEROL
     Dosage: 1 DAILY PO
     Route: 048
     Dates: start: 20090420, end: 20090520
  2. CARVEDILOL 3.125MG TEVA [Suspect]
     Indication: ATHEROSCLEROSIS PROPHYLAXIS
     Dosage: 1 TWICE DAILY PO
     Route: 048
     Dates: start: 20081221, end: 20090104

REACTIONS (3)
  - GAIT DISTURBANCE [None]
  - MUSCULAR WEAKNESS [None]
  - MYALGIA [None]
